FAERS Safety Report 6927531-4 (Version None)
Quarter: 2010Q3

REPORT INFORMATION
  Report Type: 
  Country: None (occurrence: None)
  Receive Date: 20100817
  Receipt Date: 20100810
  Transmission Date: 20110219
  Serious: Yes (Other)
  Sender: FDA-Public Use
  Company Number: FR-WYE-G06194110

PATIENT
  Age: 40 Year
  Sex: Female

DRUGS (22)
  1. EFFEXOR XR [Suspect]
     Indication: BIPOLAR I DISORDER
     Dosage: 75 MG TOTAL DAILY
     Route: 048
     Dates: start: 20081120
  2. LEXOMIL [Suspect]
     Indication: BIPOLAR I DISORDER
     Dosage: UNKNOWN FROM AN UNSPECIFIED DATE TO OCT-2008 AND THEN, OVERDOSE WITH 48 MG ON 16-NOV-2008
     Route: 048
  3. RIVOTRIL [Suspect]
     Indication: BIPOLAR I DISORDER
     Dosage: 2 DOSES TOTAL DAILY
     Dates: end: 20081001
  4. RIVOTRIL [Suspect]
     Dosage: 40 MG TOTAL DAILY
     Dates: start: 20090115
  5. LYSANXIA [Suspect]
     Indication: BIPOLAR I DISORDER
     Dosage: UNKNOWN
     Dates: end: 20081001
  6. TOPIRAMATE [Suspect]
     Indication: BIPOLAR I DISORDER
     Dosage: UNKNOWN
     Dates: end: 20081001
  7. ZYPREXA [Suspect]
     Indication: BIPOLAR I DISORDER
     Route: 048
     Dates: start: 20081001, end: 20081125
  8. ZYPREXA [Suspect]
     Dosage: 7.5 MG TOTAL DAILY
     Route: 048
     Dates: start: 20081126, end: 20090212
  9. ZYPREXA [Suspect]
     Dosage: 20 MG TOTAL DAILY
     Route: 048
     Dates: start: 20090213, end: 20090301
  10. ZYPREXA [Suspect]
     Route: 048
     Dates: start: 20090302
  11. IMOVANE [Suspect]
     Indication: BIPOLAR I DISORDER
     Route: 048
     Dates: start: 20081118, end: 20090201
  12. LARGACTIL [Suspect]
     Indication: BIPOLAR I DISORDER
     Route: 048
     Dates: start: 20081118
  13. SERESTA [Suspect]
     Indication: BIPOLAR I DISORDER
     Dosage: 20 MG TOTAL DAILY
     Route: 048
     Dates: start: 20081118
  14. SPASFON [Suspect]
     Dosage: 160 MG TOTAL DAILY
     Route: 048
     Dates: start: 20081118
  15. STILNOX [Suspect]
     Indication: BIPOLAR I DISORDER
     Route: 048
     Dates: start: 20081126, end: 20081201
  16. TRIMEPRAZINE TAB [Suspect]
     Indication: BIPOLAR I DISORDER
     Dosage: 100 DROPS TOTAL DAILY
     Route: 048
     Dates: start: 20090115, end: 20090101
  17. TRIMEPRAZINE TAB [Suspect]
     Dosage: UNKNOWN, BUT LESS THAN 100 DROPS PER DAY
     Route: 048
     Dates: start: 20090101
  18. SEROPLEX [Suspect]
     Indication: BIPOLAR I DISORDER
     Route: 048
     Dates: start: 20090213, end: 20090228
  19. AKINETON [Suspect]
     Indication: BIPOLAR I DISORDER
     Route: 048
     Dates: start: 20090213
  20. NEULEPTIL [Suspect]
     Indication: BIPOLAR I DISORDER
     Dosage: 50 DROPS TOTAL DAILY
     Route: 048
     Dates: start: 20090225
  21. AMOXICILLIN [Suspect]
     Dosage: 3 G TOTAL DAILY
     Route: 048
     Dates: start: 20090225
  22. AMITRIPTYLINE HCL [Suspect]
     Indication: BIPOLAR I DISORDER
     Dosage: 36 DROPS PER DAY FROM AN UNSPECIFIED DATE TO OCT-2008; OVERDOSE WITH ONE FULL BOTTLE ON 16-NOV-2008
     Route: 048

REACTIONS (12)
  - BLOOD PRESSURE INCREASED [None]
  - DRUG EXPOSURE DURING PREGNANCY [None]
  - ESCHERICHIA VAGINITIS [None]
  - FALL [None]
  - FATIGUE [None]
  - HELLP SYNDROME [None]
  - INTRA-UTERINE DEATH [None]
  - PROTEINURIA [None]
  - SLEEP DISORDER [None]
  - SOMNOLENCE [None]
  - THROMBOCYTOPENIA [None]
  - VAGINITIS GARDNERELLA [None]
